FAERS Safety Report 9699696 (Version 1)
Quarter: 2013Q4

REPORT INFORMATION
  Report Type: Spontaneous
  Country: US (occurrence: US)
  Receive Date: 20131120
  Receipt Date: 20131120
  Transmission Date: 20140711
  Serious: No
  Sender: FDA-Public Use
  Company Number: US-TEVA-371395USA

PATIENT
  Age: 19 Year
  Sex: Female
  Weight: 89.89 kg

DRUGS (1)
  1. PARAGARD 380A [Suspect]
     Indication: CONTRACEPTION
     Route: 015
     Dates: start: 20120308, end: 20121004

REACTIONS (5)
  - Pelvic pain [Recovered/Resolved]
  - Vaginal discharge [Recovered/Resolved]
  - Vaginal odour [Recovered/Resolved]
  - Device expulsion [Recovered/Resolved]
  - Bacterial vaginosis [Recovered/Resolved]
